FAERS Safety Report 4330632-0 (Version None)
Quarter: 2004Q2

REPORT INFORMATION
  Report Type: 
  Country: None (occurrence: None)
  Receive Date: 20040402
  Receipt Date: 20040325
  Transmission Date: 20050107
  Serious: Yes (Other)
  Sender: FDA-Public Use
  Company Number: AU-ROCHE-362765

PATIENT
  Sex: Male

DRUGS (5)
  1. PEGASYS [Suspect]
     Indication: HEPATITIS C
     Route: 058
  2. RIBAVIRIN [Suspect]
     Indication: HEPATITIS C
     Route: 065
  3. ZIDOVUDINE [Concomitant]
  4. NEVIRAPINE [Concomitant]
  5. NELFINAVIR [Concomitant]

REACTIONS (3)
  - ANTIBODY TEST POSITIVE [None]
  - PROTEIN S DECREASED [None]
  - THROMBOSIS [None]
